FAERS Safety Report 10414244 (Version 5)
Quarter: 2025Q4

REPORT INFORMATION
  Report Type: Report from Study
  Country: CA (occurrence: CA)
  Receive Date: 20140827
  Receipt Date: 20251114
  Transmission Date: 20260118
  Serious: Yes (Other)
  Sender: ROCHE
  Company Number: CA-ROCHE-1336891

PATIENT
  Age: 61 Year
  Sex: Female
  Weight: 49 kg

DRUGS (37)
  1. ACTEMRA [Suspect]
     Active Substance: TOCILIZUMAB
     Indication: Rheumatoid arthritis
     Dosage: THERAPY START AND END DATE: 06-NOV-2014
     Route: 042
     Dates: start: 20141106, end: 20141106
  2. ACTEMRA [Suspect]
     Active Substance: TOCILIZUMAB
     Route: 042
     Dates: start: 20141203, end: 20150617
  3. ACTEMRA [Suspect]
     Active Substance: TOCILIZUMAB
     Route: 042
     Dates: start: 20130612, end: 20140813
  4. ACTEMRA [Suspect]
     Active Substance: TOCILIZUMAB
     Route: 042
     Dates: start: 20150716, end: 20241120
  5. ACTEMRA [Suspect]
     Active Substance: TOCILIZUMAB
     Route: 042
  6. ACTEMRA [Suspect]
     Active Substance: TOCILIZUMAB
     Route: 042
  7. ACTEMRA [Suspect]
     Active Substance: TOCILIZUMAB
     Route: 042
  8. ACTEMRA [Suspect]
     Active Substance: TOCILIZUMAB
     Route: 042
  9. ACTEMRA [Suspect]
     Active Substance: TOCILIZUMAB
     Route: 042
  10. ACTEMRA [Suspect]
     Active Substance: TOCILIZUMAB
     Route: 042
  11. ACTEMRA [Suspect]
     Active Substance: TOCILIZUMAB
     Route: 042
  12. ACTEMRA [Suspect]
     Active Substance: TOCILIZUMAB
     Route: 042
  13. ACTEMRA [Suspect]
     Active Substance: TOCILIZUMAB
     Route: 042
  14. ACTEMRA [Suspect]
     Active Substance: TOCILIZUMAB
     Route: 042
  15. ACTEMRA [Suspect]
     Active Substance: TOCILIZUMAB
     Route: 042
  16. ACTEMRA [Suspect]
     Active Substance: TOCILIZUMAB
     Route: 042
  17. ACTEMRA [Suspect]
     Active Substance: TOCILIZUMAB
     Route: 042
  18. ACTEMRA [Suspect]
     Active Substance: TOCILIZUMAB
     Route: 042
  19. ACTEMRA [Suspect]
     Active Substance: TOCILIZUMAB
     Route: 042
  20. ACTEMRA [Suspect]
     Active Substance: TOCILIZUMAB
     Route: 042
  21. ACTEMRA [Suspect]
     Active Substance: TOCILIZUMAB
     Route: 042
  22. ACTEMRA [Suspect]
     Active Substance: TOCILIZUMAB
     Route: 042
  23. ACTEMRA [Suspect]
     Active Substance: TOCILIZUMAB
     Route: 042
  24. ACTEMRA [Suspect]
     Active Substance: TOCILIZUMAB
     Route: 042
  25. ACTEMRA [Suspect]
     Active Substance: TOCILIZUMAB
     Route: 042
  26. ACTEMRA [Suspect]
     Active Substance: TOCILIZUMAB
     Dosage: 1 TIME, GIVEN BY MISTAKE
     Route: 042
     Dates: start: 20241218, end: 20241218
  27. ACTEMRA [Suspect]
     Active Substance: TOCILIZUMAB
     Route: 042
     Dates: start: 20250129
  28. ACTEMRA [Suspect]
     Active Substance: TOCILIZUMAB
     Route: 042
  29. ACTEMRA [Suspect]
     Active Substance: TOCILIZUMAB
     Route: 042
  30. PREDNISONE [Concomitant]
     Active Substance: PREDNISONE
     Dosage: DAILY
  31. PREDNISONE [Concomitant]
     Active Substance: PREDNISONE
  32. CALCIUM [Concomitant]
     Active Substance: CALCIUM
  33. FOLIC ACID [Concomitant]
     Active Substance: FOLIC ACID
  34. AMITRIPTYLINE [Concomitant]
     Active Substance: AMITRIPTYLINE
     Indication: Sleep disorder
  35. METHOTREXATE [Concomitant]
     Active Substance: METHOTREXATE
     Route: 058
  36. AMITRIPTYLINE [Concomitant]
     Active Substance: AMITRIPTYLINE
     Indication: Sleep disorder
  37. VITAMIN D [Concomitant]
     Active Substance: VITAMIN D NOS

REACTIONS (36)
  - Foot deformity [Recovered/Resolved]
  - Hepatic fibrosis [Unknown]
  - Hypertransaminasaemia [Unknown]
  - Nasopharyngitis [Unknown]
  - Diarrhoea [Recovered/Resolved]
  - Decreased appetite [Recovering/Resolving]
  - Blood pressure increased [Unknown]
  - Infusion related reaction [Unknown]
  - Throat irritation [Recovered/Resolved]
  - Sneezing [Recovered/Resolved]
  - Rhinorrhoea [Recovered/Resolved]
  - Cough [Recovered/Resolved]
  - Heart rate decreased [Unknown]
  - Blood pressure diastolic decreased [Unknown]
  - Anxiety [Unknown]
  - Blood pressure fluctuation [Unknown]
  - Heart rate increased [Unknown]
  - Blood pressure systolic abnormal [Unknown]
  - Temporomandibular pain and dysfunction syndrome [Not Recovered/Not Resolved]
  - Incorrect dose administered [Unknown]
  - Medication error [Unknown]
  - Blood pressure diastolic abnormal [Unknown]
  - Blood pressure diastolic increased [Unknown]
  - Weight decreased [Unknown]
  - Pain in extremity [Not Recovered/Not Resolved]
  - Localised infection [Not Recovered/Not Resolved]
  - Sleep disorder [Unknown]
  - Depression [Unknown]
  - Platelet count decreased [Unknown]
  - Blood pressure systolic increased [Unknown]
  - Osteoarthritis [Unknown]
  - Lymphopenia [Unknown]
  - Oxygen saturation decreased [Unknown]
  - Weight increased [Unknown]
  - Arthralgia [Not Recovered/Not Resolved]
  - Rheumatoid arthritis [Not Recovered/Not Resolved]

NARRATIVE: CASE EVENT DATE: 20141106
